FAERS Safety Report 8031028-0 (Version None)
Quarter: 2012Q1

REPORT INFORMATION
  Report Type: 
  Country: None (occurrence: None)
  Receive Date: 20120109
  Receipt Date: 20120106
  Transmission Date: 20120608
  Serious: Yes (Other)
  Sender: FDA-Public Use
  Company Number: US-PFIZER INC-2012004859

PATIENT
  Sex: Female
  Weight: 68.027 kg

DRUGS (3)
  1. IBUPROFEN (ADVIL) [Suspect]
     Indication: MYALGIA
     Dosage: 200 MG, AS NEEDED
     Route: 048
     Dates: start: 20111228, end: 20120101
  2. IBUPROFEN (ADVIL) [Suspect]
     Indication: BACK PAIN
  3. IBUPROFEN (ADVIL) [Suspect]
     Indication: PAIN IN EXTREMITY

REACTIONS (1)
  - GASTRIC HAEMORRHAGE [None]
